FAERS Safety Report 8850692 (Version 2)
Quarter: 2012Q4

REPORT INFORMATION
  Report Type: 
  Country: FR (occurrence: FR)
  Receive Date: 20121019
  Receipt Date: 20121030
  Transmission Date: 20130627
  Serious: Yes (Other)
  Sender: FDA-Public Use
  Company Number: FR-JNJFOC-20121006529

PATIENT
  Age: 34 Year
  Sex: Female

DRUGS (2)
  1. REMICADE [Suspect]
     Indication: ANKYLOSING SPONDYLITIS
     Route: 042
     Dates: start: 2012
  2. REMICADE [Suspect]
     Indication: ANKYLOSING SPONDYLITIS
     Route: 042
     Dates: start: 201202

REACTIONS (3)
  - Motor dysfunction [Not Recovered/Not Resolved]
  - Sensory loss [Recovering/Resolving]
  - Post lumbar puncture syndrome [Unknown]
